FAERS Safety Report 7370403-4 (Version None)
Quarter: 2011Q1

REPORT INFORMATION
  Report Type: 
  Country: None (occurrence: None)
  Receive Date: 20110323
  Receipt Date: 20110311
  Transmission Date: 20110831
  Serious: Yes (Hospitalization)
  Sender: FDA-Public Use
  Company Number: US-CELGENEUS-163-21880-11031469

PATIENT
  Age: 48 Year
  Sex: Female
  Weight: 51.756 kg

DRUGS (1)
  1. REVLIMID [Suspect]
     Indication: POEMS SYNDROME
     Dosage: 10 MILLIGRAM
     Route: 048
     Dates: start: 20101201

REACTIONS (1)
  - POEMS SYNDROME [None]
